FAERS Safety Report 15741857 (Version 1)
Quarter: 2018Q4

REPORT INFORMATION
  Report Type: Spontaneous
  Country: IT (occurrence: IT)
  Receive Date: 20181219
  Receipt Date: 20181219
  Transmission Date: 20190205
  Serious: Yes (Hospitalization)
  Sender: FDA-Public Use
  Company Number: IT-TEVA-2018-IT-988289

PATIENT
  Age: 74 Year
  Sex: Male

DRUGS (4)
  1. CLOPIDOGREL [Suspect]
     Active Substance: CLOPIDOGREL BISULFATE
     Indication: PLATELET AGGREGATION INHIBITION
     Dosage: 75 MILLIGRAM DAILY;
     Route: 065
     Dates: start: 20141101, end: 20181110
  2. NORVASC [Concomitant]
     Active Substance: AMLODIPINE BESYLATE
     Dosage: 5 MILLIGRAM DAILY;
  3. MICARDIS [Concomitant]
     Active Substance: TELMISARTAN
     Dosage: 20 MILLIGRAM DAILY;
  4. OKI [Suspect]
     Active Substance: KETOPROFEN LYSINE
     Route: 065
     Dates: start: 20181108, end: 20181110

REACTIONS (2)
  - Melaena [Unknown]
  - Haematemesis [Unknown]

NARRATIVE: CASE EVENT DATE: 20181111
